FAERS Safety Report 10290534 (Version 1)
Quarter: 2014Q3

REPORT INFORMATION
  Report Type: Spontaneous
  Country: US (occurrence: US)
  Receive Date: 20140710
  Receipt Date: 20140710
  Transmission Date: 20150326
  Serious: Yes (Hospitalization, Other)
  Sender: FDA-Public Use
  Company Number: US-JNJFOC-20140702613

PATIENT
  Age: 57 Year
  Sex: Male
  Weight: 99 kg

DRUGS (34)
  1. TEMAZEPAM. [Concomitant]
     Active Substance: TEMAZEPAM
     Route: 065
     Dates: start: 20070223
  2. IBUPROFEN. [Concomitant]
     Active Substance: IBUPROFEN
     Route: 065
     Dates: start: 20070223
  3. CLARINEX [Concomitant]
     Active Substance: DESLORATADINE
     Route: 065
  4. FAMOTIDINE. [Concomitant]
     Active Substance: FAMOTIDINE
     Route: 065
     Dates: start: 20130823
  5. DIPHENHYDRAMINE [Concomitant]
     Active Substance: DIPHENHYDRAMINE
     Route: 065
     Dates: start: 20130114
  6. CEFEPIME [Suspect]
     Active Substance: CEFEPIME\CEFEPIME HYDROCHLORIDE
     Indication: PRODUCT USED FOR UNKNOWN INDICATION
     Route: 065
  7. GEMFIBROZIL. [Concomitant]
     Active Substance: GEMFIBROZIL
     Route: 065
     Dates: start: 20101203
  8. ABILIFY [Concomitant]
     Active Substance: ARIPIPRAZOLE
     Route: 065
     Dates: start: 20130507
  9. FLUTICASONE PROPIONATE. [Concomitant]
     Active Substance: FLUTICASONE PROPIONATE
     Route: 065
  10. LISINOPRIL. [Concomitant]
     Active Substance: LISINOPRIL
     Route: 065
  11. SOLU-CORTEF [Concomitant]
     Active Substance: HYDROCORTISONE SODIUM SUCCINATE
     Route: 065
     Dates: start: 20130823
  12. FLUTICASONE [Concomitant]
     Active Substance: FLUTICASONE\FLUTICASONE PROPIONATE
     Route: 065
     Dates: start: 20120514
  13. BIOTIN [Concomitant]
     Active Substance: BIOTIN
     Route: 065
     Dates: start: 2012
  14. METFORMIN [Concomitant]
     Active Substance: METFORMIN HYDROCHLORIDE
     Route: 065
     Dates: start: 20130211
  15. DEXAMETHASONE. [Concomitant]
     Active Substance: DEXAMETHASONE
     Route: 065
     Dates: start: 20130823
  16. ANDROGEL [Concomitant]
     Active Substance: TESTOSTERONE
     Route: 065
     Dates: start: 2008
  17. LEVAQUIN [Suspect]
     Active Substance: LEVOFLOXACIN
     Indication: PRODUCT USED FOR UNKNOWN INDICATION
     Route: 065
  18. LIPITOR [Concomitant]
     Active Substance: ATORVASTATIN CALCIUM
     Route: 065
     Dates: start: 2011
  19. NORCO [Concomitant]
     Active Substance: ACETAMINOPHEN\HYDROCODONE BITARTRATE
     Route: 065
     Dates: start: 20110520
  20. GLUCOSAMINE / CHONDROITIN [Concomitant]
     Route: 065
  21. ATIVAN [Concomitant]
     Active Substance: LORAZEPAM
     Route: 065
     Dates: start: 20130510
  22. BIOFREEZE [Concomitant]
     Active Substance: MENTHOL
     Route: 065
     Dates: start: 20070223
  23. BUPROPION [Concomitant]
     Active Substance: BUPROPION
     Route: 065
     Dates: start: 20130514
  24. REQUIP [Concomitant]
     Active Substance: ROPINIROLE HYDROCHLORIDE
     Route: 065
     Dates: start: 2008
  25. VITAMIN D3 [Concomitant]
     Active Substance: CHOLECALCIFEROL
     Route: 065
  26. VITAMIN D [Concomitant]
     Active Substance: CHOLECALCIFEROL
     Route: 065
     Dates: start: 20100528
  27. ACETAMINOPHEN. [Concomitant]
     Active Substance: ACETAMINOPHEN
     Route: 065
     Dates: start: 20130114
  28. ZITHROMAX [Suspect]
     Active Substance: AZITHROMYCIN DIHYDRATE
     Indication: PROPHYLAXIS
     Route: 048
     Dates: start: 20131115
  29. ZITHROMAX [Suspect]
     Active Substance: AZITHROMYCIN DIHYDRATE
     Indication: PROPHYLAXIS
     Route: 048
     Dates: start: 20131115, end: 20140408
  30. GS-9973 [Suspect]
     Active Substance: INVESTIGATIONAL PRODUCT
     Indication: NON-HODGKIN^S LYMPHOMA
     Route: 048
     Dates: start: 20130507, end: 20140313
  31. CIALIS [Concomitant]
     Active Substance: TADALAFIL
     Route: 065
     Dates: start: 20130507
  32. PHENYLEPHRINE [Concomitant]
     Active Substance: PHENYLEPHRINE\PHENYLEPHRINE HYDROCHLORIDE
     Route: 065
     Dates: start: 20130507
  33. CLARITIN [Concomitant]
     Active Substance: LORATADINE
     Route: 065
     Dates: start: 20130508
  34. IMMUNOGLOBULIN HUMAN NORMAL [Concomitant]
     Active Substance: HUMAN IMMUNOGLOBULIN G
     Route: 065
     Dates: start: 20130114

REACTIONS (2)
  - Pyrexia [Recovered/Resolved]
  - Cholestasis [Recovered/Resolved]

NARRATIVE: CASE EVENT DATE: 20140314
